FAERS Safety Report 24861509 (Version 2)
Quarter: 2025Q1

REPORT INFORMATION
  Report Type: Spontaneous
  Country: CN (occurrence: CN)
  Receive Date: 20250120
  Receipt Date: 20250123
  Transmission Date: 20250409
  Serious: Yes (Hospitalization)
  Sender: NOVARTIS
  Company Number: CN-002147023-NVSC2025CN004988

PATIENT
  Age: 70 Year
  Sex: Female
  Weight: 65 kg

DRUGS (2)
  1. TEGRETOL [Suspect]
     Active Substance: CARBAMAZEPINE
     Indication: Trigeminal neuralgia
     Dosage: 200 MG, BID
     Route: 048
     Dates: start: 20241211, end: 20241218
  2. TEGRETOL [Suspect]
     Active Substance: CARBAMAZEPINE
     Indication: Neuropathy peripheral

REACTIONS (20)
  - Drug eruption [Unknown]
  - Rash [Recovering/Resolving]
  - Lip swelling [Unknown]
  - Erythema [Unknown]
  - Papule [Unknown]
  - Pain [Unknown]
  - Blister [Unknown]
  - Scab [Unknown]
  - Conjunctival hyperaemia [Unknown]
  - Oral mucosal eruption [Unknown]
  - Dysphagia [Unknown]
  - Vision blurred [Unknown]
  - Eosinophil count increased [Unknown]
  - Aspartate aminotransferase increased [Unknown]
  - Alanine aminotransferase increased [Unknown]
  - Erythema of eyelid [Unknown]
  - Conjunctival hyperaemia [Unknown]
  - Lens density increased [Unknown]
  - Conjunctivitis [Unknown]
  - Temperature intolerance [Unknown]

NARRATIVE: CASE EVENT DATE: 20241218
